FAERS Safety Report 17464904 (Version 1)
Quarter: 2020Q1

REPORT INFORMATION
  Report Type: Spontaneous
  Country: US (occurrence: US)
  Receive Date: 20200226
  Receipt Date: 20200226
  Transmission Date: 20200409
  Serious: No
  Sender: FDA-Public Use
  Company Number: US-ROCHE-2373056

PATIENT
  Sex: Male
  Weight: 137 kg

DRUGS (3)
  1. BISACODYL. [Concomitant]
     Active Substance: BISACODYL
     Route: 054
     Dates: start: 20190103
  2. ALIVE [Concomitant]
     Route: 048
     Dates: start: 20180606
  3. ALECENSA [Suspect]
     Active Substance: ALECTINIB HYDROCHLORIDE
     Indication: NEOPLASM MALIGNANT
     Route: 048
     Dates: start: 20180515

REACTIONS (3)
  - Skin irritation [Unknown]
  - Dermatitis [Unknown]
  - Skin exfoliation [Unknown]
